FAERS Safety Report 4475317-5 (Version None)
Quarter: 2004Q4

REPORT INFORMATION
  Report Type: 
  Country: None (occurrence: None)
  Receive Date: 20041012
  Receipt Date: 20040927
  Transmission Date: 20050328
  Serious: Yes (Disabling, Other)
  Sender: FDA-Public Use
  Company Number: 2004045553

PATIENT
  Age: 53 Year
  Sex: Male
  Weight: 68.0396 kg

DRUGS (5)
  1. LIPITOR [Suspect]
     Indication: BLOOD CHOLESTEROL INCREASED
     Dosage: 10 MG (10 MG, 1 IN 1 D), ORAL
     Route: 048
     Dates: start: 19991001
  2. ANALGESICS (ANALGESICS) [Concomitant]
  3. PIROXICAM [Concomitant]
  4. DOCUSATE CALCIUM (DOCUSATE CALCIUM) [Concomitant]
  5. AMMONIUM LACTATE (AMMONIUM LACTATE) [Concomitant]

REACTIONS (1)
  - JOINT DISLOCATION [None]
